FAERS Safety Report 25206623 (Version 1)
Quarter: 2025Q2

REPORT INFORMATION
  Report Type: Spontaneous
  Country: US (occurrence: US)
  Receive Date: 20250417
  Receipt Date: 20250417
  Transmission Date: 20250717
  Serious: No
  Sender: ABBVIE
  Company Number: US-ABBVIE-6222145

PATIENT
  Age: 50 Year
  Sex: Female
  Weight: 77.11 kg

DRUGS (6)
  1. BOTOX COSMETIC [Suspect]
     Active Substance: ONABOTULINUMTOXINA
     Indication: Skin wrinkling
     Route: 030
     Dates: start: 2023, end: 2023
  2. BOTOX COSMETIC [Suspect]
     Active Substance: ONABOTULINUMTOXINA
     Indication: Skin wrinkling
     Route: 030
     Dates: start: 20241021, end: 20241021
  3. BOTOX COSMETIC [Suspect]
     Active Substance: ONABOTULINUMTOXINA
     Indication: Skin wrinkling
     Route: 030
     Dates: start: 20250220, end: 20250220
  4. BOTOX COSMETIC [Suspect]
     Active Substance: ONABOTULINUMTOXINA
     Indication: Skin wrinkling
     Route: 030
     Dates: start: 2012, end: 2012
  5. BUSPAR [Concomitant]
     Active Substance: BUSPIRONE HYDROCHLORIDE
     Indication: Depression
  6. CLONAZEPAM [Concomitant]
     Active Substance: CLONAZEPAM
     Indication: Depression

REACTIONS (4)
  - Skin laxity [Unknown]
  - Drug ineffective [Not Recovered/Not Resolved]
  - Product administered at inappropriate site [Not Recovered/Not Resolved]
  - Incorrect dose administered [Unknown]

NARRATIVE: CASE EVENT DATE: 20250220
